FAERS Safety Report 10067479 (Version 3)
Quarter: 2015Q2

REPORT INFORMATION
  Report Type: Spontaneous
  Country: US (occurrence: US)
  Receive Date: 20140409
  Receipt Date: 20150508
  Transmission Date: 20150821
  Serious: Yes (Death, Hospitalization, Disabling, Other)
  Sender: FDA-Public Use
  Company Number: US-009507513-1404USA004088

PATIENT
  Sex: Male
  Weight: 126.8 kg

DRUGS (1)
  1. JANUVIA [Suspect]
     Active Substance: SITAGLIPTIN PHOSPHATE
     Indication: TYPE 2 DIABETES MELLITUS
     Dosage: 100 MG, QD
     Route: 048
     Dates: start: 20080910, end: 20091231

REACTIONS (11)
  - Anaemia [Unknown]
  - Bile duct stent insertion [Unknown]
  - Nephrolithiasis [Recovered/Resolved]
  - Renal cyst [Unknown]
  - Pulmonary mass [Unknown]
  - Obesity [Unknown]
  - Pruritus [Unknown]
  - Pancreatic carcinoma [Fatal]
  - Pancreaticoduodenectomy [Unknown]
  - Tachycardia [Unknown]
  - Diverticulum intestinal [Unknown]

NARRATIVE: CASE EVENT DATE: 201203
